FAERS Safety Report 10566147 (Version 1)
Quarter: 2014Q4

REPORT INFORMATION
  Report Type: Report from Study
  Country: US (occurrence: US)
  Receive Date: 20141105
  Receipt Date: 20141105
  Transmission Date: 20150529
  Serious: Yes (Hospitalization)
  Sender: FDA-Public Use
  Company Number: US-CELGENE-USA-2014105461

PATIENT
  Age: 25 Year
  Sex: Male
  Weight: 133.9 kg

DRUGS (3)
  1. CC-10004 [Suspect]
     Active Substance: APREMILAST
     Route: 048
     Dates: start: 20140919
  2. CC-10004 [Suspect]
     Active Substance: APREMILAST
     Route: 048
     Dates: start: 20141023
  3. CC-10004 [Suspect]
     Active Substance: APREMILAST
     Indication: PSORIASIS
     Route: 048
     Dates: start: 20140312, end: 20140916

REACTIONS (1)
  - Mastoiditis [Not Recovered/Not Resolved]

NARRATIVE: CASE EVENT DATE: 20140916
